FAERS Safety Report 13155290 (Version 2)
Quarter: 2017Q1

REPORT INFORMATION
  Report Type: Spontaneous
  Country: US (occurrence: US)
  Receive Date: 20170126
  Receipt Date: 20170126
  Transmission Date: 20170428
  Serious: Yes (Disabling)
  Sender: FDA-Public Use
  Company Number: US-ALK-ABELLO A/S-1062386

PATIENT
  Age: 42 Year
  Sex: Male
  Weight: 104 kg

DRUGS (1)
  1. VARIOUS UNSPECIFIED ALK ALLERGEN EXTRACTS [Suspect]
     Active Substance: ALLERGENIC EXTRACTS
     Indication: RHINITIS ALLERGIC

REACTIONS (8)
  - Multiple sclerosis [Not Recovered/Not Resolved]
  - Dizziness [Recovered/Resolved]
  - Musculoskeletal discomfort [Not Recovered/Not Resolved]
  - Disturbance in attention [Not Recovered/Not Resolved]
  - Constipation [Not Recovered/Not Resolved]
  - Memory impairment [Not Recovered/Not Resolved]
  - Mental disorder [Recovered/Resolved]
  - Urinary retention [Not Recovered/Not Resolved]
